FAERS Safety Report 6804780-7 (Version None)
Quarter: 2010Q2

REPORT INFORMATION
  Report Type: 
  Country: None (occurrence: None)
  Receive Date: 20100628
  Receipt Date: 20070524
  Transmission Date: 20101027
  Serious: No
  Sender: FDA-Public Use
  Company Number: US-PFIZER INC-2007042159

PATIENT
  Sex: Female
  Weight: 80.29 kg

DRUGS (4)
  1. GEODON [Suspect]
     Indication: MOOD SWINGS
     Dates: start: 20030101
  2. DEPAKOTE [Concomitant]
  3. SYNTHROID [Concomitant]
  4. MULTI-VITAMINS [Concomitant]

REACTIONS (4)
  - BLOOD CHLORIDE INCREASED [None]
  - BLOOD CREATININE ABNORMAL [None]
  - DEHYDRATION [None]
  - GLOMERULAR FILTRATION RATE INCREASED [None]
